FAERS Safety Report 6258326-5 (Version None)
Quarter: 2009Q3

REPORT INFORMATION
  Report Type: 
  Country: None (occurrence: None)
  Receive Date: 20090707
  Receipt Date: 20090629
  Transmission Date: 20100115
  Serious: Yes (Other)
  Sender: FDA-Public Use
  Company Number: PHHY2009JP11620

PATIENT
  Sex: Male

DRUGS (1)
  1. ZADITEN [Suspect]
     Indication: SEASONAL ALLERGY
     Dosage: 1 DF
     Route: 048
     Dates: start: 20090301, end: 20090301

REACTIONS (4)
  - AFFECTIVE DISORDER [None]
  - ASTHENIA [None]
  - DEPRESSION [None]
  - THIRST [None]
